FAERS Safety Report 9188027 (Version 1)
Quarter: 2013Q1

REPORT INFORMATION
  Report Type: Spontaneous
  Country: US (occurrence: US)
  Receive Date: 20130325
  Receipt Date: 20130325
  Transmission Date: 20140127
  Serious: Yes (Death)
  Sender: FDA-Public Use
  Company Number: US-GLAXOSMITHKLINE-A1016944A

PATIENT
  Age: 78 Year
  Sex: Male

DRUGS (5)
  1. VOTRIENT [Suspect]
     Indication: RENAL CANCER
     Dosage: 800MG PER DAY
     Route: 048
     Dates: start: 20120602, end: 20130228
  2. PROSCAR [Concomitant]
  3. PRAVACHOL [Concomitant]
  4. NEXIUM [Concomitant]
  5. LASIX [Concomitant]

REACTIONS (1)
  - Myocardial infarction [Fatal]
